FAERS Safety Report 23603521 (Version 2)
Quarter: 2024Q4

REPORT INFORMATION
  Report Type: Report from Study
  Country: DE (occurrence: DE)
  Receive Date: 20240307
  Receipt Date: 20241206
  Transmission Date: 20250115
  Serious: Yes (Hospitalization)
  Sender: ABBVIE
  Company Number: DE-ABBVIE-5647537

PATIENT
  Age: 38 Year
  Sex: Female
  Weight: 82 kg

DRUGS (14)
  1. SKYRIZI [Suspect]
     Active Substance: RISANKIZUMAB-RZAA
     Indication: Psoriasis
     Route: 058
     Dates: start: 20220607
  2. VITAMIN B12 [Concomitant]
     Active Substance: CYANOCOBALAMIN
     Indication: Pain
  3. Novalgin [Concomitant]
     Indication: Pain
     Route: 048
     Dates: start: 202302
  4. FOLIC ACID [Concomitant]
     Active Substance: FOLIC ACID
     Indication: Pain
  5. BUPIVACAINE HYDROCHLORIDE [Concomitant]
     Active Substance: BUPIVACAINE HYDROCHLORIDE
     Indication: Product used for unknown indication
  6. VITAMIN B6 [Concomitant]
     Active Substance: PYRIDOXINE HYDROCHLORIDE
     Indication: Pain
  7. VITAMIN B1 [Concomitant]
     Active Substance: THIAMINE HYDROCHLORIDE
     Indication: Pain
  8. CANDEREL [Concomitant]
     Indication: Hypertension
     Dosage: CANDEROL
     Route: 048
     Dates: start: 202301
  9. AMLODIPINE BESYLATE [Concomitant]
     Active Substance: AMLODIPINE BESYLATE
     Indication: Hypertension
     Route: 048
     Dates: start: 202209
  10. VITAMIN D [Concomitant]
     Active Substance: VITAMIN D NOS
     Indication: Pain
  11. VITAMIN B COMPLEX [Concomitant]
     Active Substance: CYANOCOBALAMIN\DEXPANTHENOL\NIACINAMIDE\PYRIDOXINE HYDROCHLORIDE\RIBOFLAVIN 5^-PHOSPHATE SODIUM\THIA
     Indication: Pain
     Route: 048
     Dates: start: 202302
  12. VITAMIN B COMPLEX [Concomitant]
     Active Substance: CYANOCOBALAMIN\DEXPANTHENOL\NIACINAMIDE\PYRIDOXINE HYDROCHLORIDE\RIBOFLAVIN 5^-PHOSPHATE SODIUM\THIA
     Indication: Pain
     Route: 048
     Dates: start: 202302
  13. VITAMIN B COMPLEX [Concomitant]
     Active Substance: CYANOCOBALAMIN\DEXPANTHENOL\NIACINAMIDE\PYRIDOXINE HYDROCHLORIDE\RIBOFLAVIN 5^-PHOSPHATE SODIUM\THIA
     Indication: Pain
     Route: 048
     Dates: start: 202302
  14. PROCAINE [Concomitant]
     Active Substance: PROCAINE
     Indication: Pain
     Route: 042
     Dates: start: 202302, end: 202302

REACTIONS (26)
  - Cervicobrachial syndrome [Recovered/Resolved]
  - Paraesthesia [Unknown]
  - Myosclerosis [Recovered/Resolved]
  - Spinal osteoarthritis [Recovered/Resolved]
  - Cervical radiculopathy [Recovered/Resolved]
  - Hypoaesthesia [Unknown]
  - Back pain [Unknown]
  - Bone pain [Unknown]
  - Spinal pain [Unknown]
  - Sciatica [Recovered/Resolved]
  - Analgesic intervention supportive therapy [Recovered/Resolved]
  - Arthralgia [Recovered/Resolved]
  - Cervical spinal stenosis [Recovered/Resolved]
  - Facet joint syndrome [Recovered/Resolved]
  - Intervertebral disc protrusion [Recovered/Resolved]
  - Intervertebral disc protrusion [Recovered/Resolved]
  - Myofascial pain syndrome [Recovered/Resolved]
  - Osteochondrosis [Recovered/Resolved]
  - Sacroiliac joint dysfunction [Recovered/Resolved]
  - Spinal osteoarthritis [Recovered/Resolved]
  - Cervicogenic headache [Recovered/Resolved]
  - Lumbar radiculopathy [Recovered/Resolved]
  - Sciatica [Recovered/Resolved]
  - Sciatica [Recovered/Resolved]
  - Neck pain [Not Recovered/Not Resolved]
  - Chest pain [Not Recovered/Not Resolved]

NARRATIVE: CASE EVENT DATE: 20230209
